FAERS Safety Report 18460833 (Version 2)
Quarter: 2021Q1

REPORT INFORMATION
  Report Type: Other
  Country: CA (occurrence: CA)
  Receive Date: 20201103
  Receipt Date: 20210110
  Transmission Date: 20210419
  Serious: Yes (Other)
  Sender: FDA-Public Use
  Company Number: CA-CELLTRION INC.-2020CA030010

PATIENT

DRUGS (16)
  1. ORENCIA [Suspect]
     Active Substance: ABATACEPT
     Indication: RHEUMATOID ARTHRITIS
     Dosage: 150 GRAM
     Route: 058
  2. SULFASALAZINE. [Suspect]
     Active Substance: SULFASALAZINE
     Indication: RHEUMATOID ARTHRITIS
     Dosage: 500 MILLIGRAM, 2 EVERY 1 DAY
     Route: 065
  3. METHOTREXATE. [Suspect]
     Active Substance: METHOTREXATE
     Indication: RHEUMATOID ARTHRITIS
     Route: 058
  4. ORENCIA [Suspect]
     Active Substance: ABATACEPT
     Dosage: 150 GRAM
     Route: 058
  5. SIMPONI [Suspect]
     Active Substance: GOLIMUMAB
     Indication: RHEUMATOID ARTHRITIS
     Dosage: 50 MILLIGRAM, 1 EVERY 4 MONTHS
     Route: 058
  6. XELJANZ [Suspect]
     Active Substance: TOFACITINIB CITRATE
     Indication: RHEUMATOID ARTHRITIS
     Dosage: 5 MILLIGRAM, 2 EVERY 1 DAY
     Route: 048
  7. METHOTREXATE. [Suspect]
     Active Substance: METHOTREXATE
     Indication: RHEUMATOID ARTHRITIS
     Dosage: 25 MILLIGRAM
     Route: 058
  8. ORENCIA [Suspect]
     Active Substance: ABATACEPT
     Dosage: 150 GRAM
     Route: 058
  9. RITUXIMAB (UNKNOWN) [Suspect]
     Active Substance: RITUXIMAB
     Dosage: 1 GRAM
     Route: 042
  10. NAPROXEN. [Suspect]
     Active Substance: NAPROXEN
     Dosage: 50 MILLIGRAM, 2 EVERY 1 DAY
     Route: 065
  11. SIMPONI [Suspect]
     Active Substance: GOLIMUMAB
     Indication: RHEUMATOID ARTHRITIS
     Dosage: 50 MILLIGRAM, 1 EVERY 4 WEEKS
     Route: 058
  12. XELJANZ [Suspect]
     Active Substance: TOFACITINIB CITRATE
     Dosage: 5 MILLIGRAM
     Route: 048
  13. RITUXIMAB (UNKNOWN) [Suspect]
     Active Substance: RITUXIMAB
     Indication: RHEUMATOID ARTHRITIS
     Dosage: UNK
     Route: 042
  14. RITUXIMAB (UNKNOWN) [Suspect]
     Active Substance: RITUXIMAB
     Dosage: UNK
     Route: 042
  15. ENBREL [Suspect]
     Active Substance: ETANERCEPT
     Indication: RHEUMATOID ARTHRITIS
     Dosage: 50 MILLIGRAM
     Route: 058
  16. NAPROXEN. [Suspect]
     Active Substance: NAPROXEN
     Indication: RHEUMATOID ARTHRITIS
     Dosage: 500 MILLIGRAM, 2 EVERY 1 DAY
     Route: 065

REACTIONS (12)
  - Diarrhoea [Recovered/Resolved]
  - Prescribed underdose [Recovered/Resolved]
  - Vomiting [Recovered/Resolved]
  - Abdominal pain [Recovered/Resolved]
  - Drug ineffective [Recovered/Resolved]
  - Drug intolerance [Recovered/Resolved]
  - Fibromyalgia [Recovered/Resolved]
  - Oedema [Recovered/Resolved]
  - Rheumatoid arthritis [Recovered/Resolved]
  - Synovitis [Recovered/Resolved]
  - Nausea [Recovered/Resolved]
  - Dizziness [Recovered/Resolved]
